FAERS Safety Report 8174081-6 (Version None)
Quarter: 2012Q1

REPORT INFORMATION
  Report Type: 
  Country: None (occurrence: None)
  Receive Date: 20120224
  Receipt Date: 20120216
  Transmission Date: 20120608
  Serious: Yes (Disabling)
  Sender: FDA-Public Use
  Company Number: 2012MA002245

PATIENT
  Age: 81 Year
  Sex: Male

DRUGS (7)
  1. WARFARIN SODIUM [Concomitant]
  2. FINASTERIDE [Suspect]
     Dates: start: 20111116
  3. VISCOTEARS [Concomitant]
  4. MEBEVERINE [Concomitant]
  5. SOTALOL HCL [Concomitant]
  6. ISPAGHULA HUSK [Concomitant]
  7. DOXAZOSIN MESYLATE [Concomitant]

REACTIONS (1)
  - URINE FLOW DECREASED [None]
